FAERS Safety Report 25040737 (Version 1)
Quarter: 2025Q1

REPORT INFORMATION
  Report Type: Spontaneous
  Country: CA (occurrence: CA)
  Receive Date: 20250305
  Receipt Date: 20250305
  Transmission Date: 20250409
  Serious: Yes (Other)
  Sender: ACCORD
  Company Number: None

PATIENT
  Age: 73 Year
  Sex: Male
  Weight: 109 kg

DRUGS (6)
  1. METHOTREXATE SODIUM [Suspect]
     Active Substance: METHOTREXATE SODIUM
     Indication: Ankylosing spondylitis
  2. ARAVA [Concomitant]
     Active Substance: LEFLUNOMIDE
  3. FOLIC ACID [Concomitant]
     Active Substance: FOLIC ACID
  4. HUMIRA [Concomitant]
     Active Substance: ADALIMUMAB
     Route: 058
  5. REMICADE [Concomitant]
     Active Substance: INFLIXIMAB
     Route: 042
  6. METHOTREXATE SODIUM [Suspect]
     Active Substance: METHOTREXATE SODIUM
     Indication: Ankylosing spondylitis

REACTIONS (1)
  - Limb injury [Unknown]
